FAERS Safety Report 4819034-8 (Version None)
Quarter: 2005Q4

REPORT INFORMATION
  Report Type: 
  Country: None (occurrence: None)
  Receive Date: 20051101
  Receipt Date: 20051018
  Transmission Date: 20060501
  Serious: Yes (Hospitalization)
  Sender: FDA-Public Use
  Company Number: DSA_27302_2005

PATIENT
  Age: 42 Year
  Sex: Female

DRUGS (2)
  1. TAVOR [Suspect]
     Dosage: 25 MG ONCE PO
     Route: 048
     Dates: start: 20050907, end: 20050907
  2. ALCOHOL [Suspect]
     Dates: start: 20050907, end: 20050907

REACTIONS (5)
  - BUNDLE BRANCH BLOCK RIGHT [None]
  - COMA [None]
  - MULTIPLE DRUG OVERDOSE INTENTIONAL [None]
  - SINUS TACHYCARDIA [None]
  - VERTIGO [None]
